FAERS Safety Report 5327609-5 (Version None)
Quarter: 2007Q2

REPORT INFORMATION
  Report Type: 
  Country: None (occurrence: None)
  Receive Date: 20070517
  Receipt Date: 20070510
  Transmission Date: 20071010
  Serious: Yes (Hospitalization)
  Sender: FDA-Public Use
  Company Number: GB-BRISTOL-MYERS SQUIBB COMPANY-13782578

PATIENT
  Age: 73 Year
  Sex: Male

DRUGS (4)
  1. CYCLOPHOSPHAMIDE [Suspect]
  2. FLUDARABINE PHOSPHATE [Suspect]
     Route: 048
  3. MABTHERA [Suspect]
     Dates: start: 20060508
  4. MITOXANTRONE [Suspect]

REACTIONS (1)
  - DIPLOPIA [None]
